FAERS Safety Report 8393904-9 (Version None)
Quarter: 2012Q2

REPORT INFORMATION
  Report Type: 
  Country: None (occurrence: None)
  Receive Date: 20120524
  Receipt Date: 20120509
  Transmission Date: 20120825
  Serious: Yes (Other)
  Sender: FDA-Public Use
  Company Number: 2012-0013

PATIENT
  Age: 85 Year
  Sex: Female

DRUGS (4)
  1. ACETAMINOPHEN [Suspect]
     Indication: ARTHRITIS
     Dosage: 2 TEASPOONS (320 MG)
     Dates: start: 20120509
  2. ZANEX [Concomitant]
  3. ALTASE [Concomitant]
  4. ZYRTEC [Concomitant]

REACTIONS (2)
  - DIARRHOEA [None]
  - ABDOMINAL PAIN [None]
